FAERS Safety Report 15936978 (Version 3)
Quarter: 2019Q3

REPORT INFORMATION
  Report Type: Report from Study
  Country: DE (occurrence: DE)
  Receive Date: 20190208
  Receipt Date: 20190801
  Transmission Date: 20191004
  Serious: Yes (Hospitalization)
  Sender: FDA-Public Use
  Company Number: DE-TEVA-2019-DE-1008870

PATIENT
  Age: 56 Year
  Sex: Female

DRUGS (3)
  1. FAMPYRA [Concomitant]
     Active Substance: DALFAMPRIDINE
     Indication: MULTIPLE SCLEROSIS
     Dosage: 20 MILLIGRAM DAILY;
     Dates: start: 20150114
  2. TIZANIDINE. [Concomitant]
     Active Substance: TIZANIDINE
     Indication: MUSCLE SPASTICITY
     Dosage: DAILY DOSE 1-2 MG
     Dates: start: 20171205
  3. COPAXONE [Suspect]
     Active Substance: GLATIRAMER ACETATE
     Indication: MULTIPLE SCLEROSIS
     Dosage: 20 MILLIGRAM DAILY;
     Dates: start: 20170519

REACTIONS (6)
  - Spinal synovial cyst [Recovered/Resolved]
  - Poor peripheral circulation [Recovered/Resolved]
  - Muscular weakness [Recovered/Resolved]
  - Peripheral coldness [Recovered/Resolved]
  - Degenerative bone disease [Unknown]
  - Haemarthrosis [Unknown]

NARRATIVE: CASE EVENT DATE: 201901
